FAERS Safety Report 15956572 (Version 1)
Quarter: 2019Q1

REPORT INFORMATION
  Report Type: Report from Study
  Country: GB (occurrence: GB)
  Receive Date: 20190213
  Receipt Date: 20190213
  Transmission Date: 20190417
  Serious: Yes (Other)
  Sender: FDA-Public Use
  Company Number: GB-MYLANLABS-2019M1013025

PATIENT
  Age: 83 Year
  Sex: Female

DRUGS (4)
  1. MITOMYCIN. [Suspect]
     Active Substance: MITOMYCIN
     Indication: PROPHYLAXIS
     Dosage: 0.2ML OF 0.2 MG/ML
     Route: 057
  2. FLUOROURACIL. [Suspect]
     Active Substance: FLUOROURACIL
     Indication: PRODUCT USED FOR UNKNOWN INDICATION
     Route: 065
  3. BEVACIZUMAB. [Suspect]
     Active Substance: BEVACIZUMAB
     Indication: PRODUCT USED FOR UNKNOWN INDICATION
     Route: 050
  4. MITOMYCIN. [Suspect]
     Active Substance: MITOMYCIN
     Indication: PROPHYLAXIS
     Dosage: 0.4 MG/MLX3 MINUTE APPLIED BY SPONGES IN THE SUBTENON^S POCKET
     Route: 065

REACTIONS (4)
  - Choroidal detachment [Unknown]
  - Conjunctival filtering bleb leak [Unknown]
  - Hypotony of eye [Unknown]
  - Off label use [Unknown]
